FAERS Safety Report 17802687 (Version 2)
Quarter: 2020Q2

REPORT INFORMATION
  Report Type: Spontaneous
  Country: JP (occurrence: JP)
  Receive Date: 20200519
  Receipt Date: 20200619
  Transmission Date: 20200714
  Serious: Yes (Life-Threatening, Hospitalization, Other)
  Sender: FDA-Public Use
  Company Number: JP-ELI_LILLY_AND_COMPANY-JP201912010316

PATIENT
  Age: 75 Year
  Sex: Female
  Weight: 55 kg

DRUGS (8)
  1. DULOXETINE HYDROCHLORIDE. [Suspect]
     Active Substance: DULOXETINE HYDROCHLORIDE
     Indication: DEPRESSION
     Dosage: 40 MG, EACH EVENING
     Route: 048
     Dates: end: 20191204
  2. LULLAN [Suspect]
     Active Substance: PEROSPIRONE HYDROCHLORIDE
     Indication: DEPRESSION
  3. LULLAN [Suspect]
     Active Substance: PEROSPIRONE HYDROCHLORIDE
     Indication: SCHIZOPHRENIA
     Dosage: 4 MG, DAILY
     Route: 048
     Dates: end: 20191204
  4. EDIROL [Concomitant]
     Active Substance: ELDECALCITOL
     Dosage: 0.25 UG, DAILY
     Route: 048
  5. LEXOTAN [Concomitant]
     Active Substance: BROMAZEPAM
     Indication: DEPRESSION
     Dosage: 2 MG, BID
     Route: 048
  6. NORVASC [Concomitant]
     Active Substance: AMLODIPINE BESYLATE
     Indication: HYPERTENSION
     Dosage: 5 MG, DAILY
     Route: 048
  7. LANSOPRAZOLE. [Concomitant]
     Active Substance: LANSOPRAZOLE
     Dosage: 15 MG, DAILY
     Route: 048
  8. SUMILU STICK [Concomitant]
     Active Substance: FELBINAC
     Dosage: UNK, PRN

REACTIONS (10)
  - Insomnia [Unknown]
  - Suicide attempt [Unknown]
  - Pneumonia [Unknown]
  - Headache [Unknown]
  - Serotonin syndrome [Recovered/Resolved]
  - Hypoaesthesia [Unknown]
  - Status epilepticus [Recovered/Resolved]
  - Altered state of consciousness [Unknown]
  - Laryngeal oedema [Unknown]
  - Agitation [Unknown]

NARRATIVE: CASE EVENT DATE: 201910
